FAERS Safety Report 9013844 (Version 1)
Quarter: 2013Q1

REPORT INFORMATION
  Report Type: Spontaneous
  Country: US (occurrence: US)
  Receive Date: 20130115
  Receipt Date: 20130115
  Transmission Date: 20140127
  Serious: Yes (Other)
  Sender: FDA-Public Use
  Company Number: US-BAYER-2013-004486

PATIENT
  Age: 20 Year
  Sex: Female
  Weight: 59.86 kg

DRUGS (3)
  1. YAZ [Suspect]
  2. NAPROXEN [Concomitant]
     Route: 048
  3. FLEXERIL [Concomitant]

REACTIONS (1)
  - Pelvic venous thrombosis [None]
